FAERS Safety Report 8305422-4 (Version None)
Quarter: 2012Q2

REPORT INFORMATION
  Report Type: 
  Country: None (occurrence: None)
  Receive Date: 20120423
  Receipt Date: 20120411
  Transmission Date: 20120825
  Serious: Yes (Other)
  Sender: FDA-Public Use
  Company Number: PHHY2012SA028217

PATIENT
  Age: 8 Year
  Sex: Male

DRUGS (2)
  1. CYCLOSPORINE [Suspect]
     Indication: GRAFT VERSUS HOST DISEASE
  2. PREDNISOLONE [Suspect]
     Indication: GRAFT VERSUS HOST DISEASE
     Dosage: 4 MG/KG, PER DAY

REACTIONS (14)
  - RESPIRATORY FAILURE [None]
  - GINGIVAL BLEEDING [None]
  - GRAFT VERSUS HOST DISEASE IN INTESTINE [None]
  - HUMAN HERPESVIRUS 8 INFECTION [None]
  - STRIDOR [None]
  - KAPOSI'S SARCOMA [None]
  - RASH MACULAR [None]
  - GINGIVAL HYPERTROPHY [None]
  - SKIN DISCOLOURATION [None]
  - HYPOXIA [None]
  - GRAFT VERSUS HOST DISEASE IN SKIN [None]
  - GRAFT VERSUS HOST DISEASE IN LIVER [None]
  - GRAFT VERSUS HOST DISEASE [None]
  - PHARYNGEAL HAEMORRHAGE [None]
